FAERS Safety Report 15852182 (Version 1)
Quarter: 2019Q1

REPORT INFORMATION
  Report Type: Spontaneous
  Country: US (occurrence: US)
  Receive Date: 20190122
  Receipt Date: 20190122
  Transmission Date: 20190417
  Serious: No
  Sender: FDA-Public Use
  Company Number: US-BAYER-2019-014249

PATIENT
  Sex: Male

DRUGS (2)
  1. MIRALAX [Suspect]
     Active Substance: POLYETHYLENE GLYCOL 3350
     Dosage: UNK
  2. SENOKOT [Concomitant]
     Active Substance: SENNOSIDES
     Dosage: UNK

REACTIONS (2)
  - Product prescribing issue [Unknown]
  - Drug ineffective [Unknown]
